FAERS Safety Report 5510976-7 (Version None)
Quarter: 2007Q4

REPORT INFORMATION
  Report Type: 
  Country: None (occurrence: None)
  Receive Date: 20071109
  Receipt Date: 20071108
  Transmission Date: 20080405
  Serious: Yes (Hospitalization)
  Sender: FDA-Public Use
  Company Number: PHHO2005AR15693

PATIENT
  Age: 86 Year
  Sex: Female
  Weight: 65 kg

DRUGS (4)
  1. ZOLEDRONIC ACID [Suspect]
     Indication: OSTEOPOROTIC FRACTURE
     Dosage: SCREENING PHASE
  2. VITAMIN D [Concomitant]
  3. CALCIUM CARBONATE [Concomitant]
  4. ATLANSIL [Concomitant]
     Indication: TACHYARRHYTHMIA

REACTIONS (8)
  - CONCOMITANT DISEASE PROGRESSION [None]
  - COUGH [None]
  - GENERAL PHYSICAL HEALTH DETERIORATION [None]
  - LEUKOCYTOSIS [None]
  - NEUTROPHILIA [None]
  - POSTOPERATIVE WOUND INFECTION [None]
  - PYREXIA [None]
  - STAPHYLOCOCCAL INFECTION [None]
